FAERS Safety Report 8312306-4 (Version None)
Quarter: 2012Q2

REPORT INFORMATION
  Report Type: 
  Country: None (occurrence: None)
  Receive Date: 20120425
  Receipt Date: 20120416
  Transmission Date: 20120825
  Serious: Yes (Other)
  Sender: FDA-Public Use
  Company Number: US-ELI_LILLY_AND_COMPANY-US201201008929

PATIENT
  Sex: Male

DRUGS (6)
  1. PROZAC [Concomitant]
     Dosage: UNK, UNKNOWN
  2. CRESTOR [Concomitant]
     Dosage: UNK, UNKNOWN
  3. METFORMIN [Concomitant]
     Dosage: UNK, UNKNOWN
  4. OMACOR [Concomitant]
     Dosage: UNK, UNKNOWN
  5. BYETTA [Suspect]
     Dosage: UNK, UNKNOWN
     Dates: start: 20080401
  6. ACIPHEX [Concomitant]
     Dosage: UNK, UNKNOWN

REACTIONS (4)
  - PANCREATITIS [None]
  - AUTOIMMUNE PANCREATITIS [None]
  - PANCREATIC MASS [None]
  - PANCREATITIS CHRONIC [None]
